FAERS Safety Report 7585317-4 (Version None)
Quarter: 2011Q3

REPORT INFORMATION
  Report Type: 
  Country: None (occurrence: None)
  Receive Date: 20110701
  Receipt Date: 20110617
  Transmission Date: 20111222
  Serious: Yes (Hospitalization, Other)
  Sender: FDA-Public Use
  Company Number: US-ELI_LILLY_AND_COMPANY-US201106004992

PATIENT
  Sex: Male

DRUGS (2)
  1. FORTEO [Suspect]
     Indication: OSTEOPOROSIS
     Dosage: 20 UG, QD
     Route: 065
     Dates: end: 20110501
  2. FORTEO [Suspect]
     Dosage: 20 UG, QD
     Dates: start: 20110612

REACTIONS (16)
  - FOOD POISONING [None]
  - BLOOD PRESSURE ABNORMAL [None]
  - ABDOMINAL PAIN UPPER [None]
  - MEDICATION ERROR [None]
  - HEART RATE IRREGULAR [None]
  - SLEEP DISORDER [None]
  - CARDIOMEGALY [None]
  - DYSPHAGIA [None]
  - APPETITE DISORDER [None]
  - CLOSTRIDIAL INFECTION [None]
  - PYREXIA [None]
  - NAUSEA [None]
  - MALAISE [None]
  - MUSCLE SPASMS [None]
  - HEPATITIS C [None]
  - VOMITING [None]
